FAERS Safety Report 6048408-5 (Version None)
Quarter: 2009Q1

REPORT INFORMATION
  Report Type: 
  Country: None (occurrence: None)
  Receive Date: 20090123
  Receipt Date: 20090114
  Transmission Date: 20090719
  Serious: Yes (Hospitalization)
  Sender: FDA-Public Use
  Company Number: A0763435A

PATIENT
  Age: 55 Year
  Sex: Female

DRUGS (26)
  1. VENTOLIN [Suspect]
     Indication: ASTHMA
     Route: 055
     Dates: start: 19990101
  2. DYAZIDE [Concomitant]
  3. UNSPECIFIED MEDICATION [Concomitant]
  4. OMEPRAZOLE [Concomitant]
  5. CELEXA [Concomitant]
  6. AMOXICILLIN [Concomitant]
  7. LORATADINE [Concomitant]
  8. AMITRIPTYLINE HCL [Concomitant]
  9. ALPRAZOLAM [Concomitant]
  10. DARVOCET [Concomitant]
  11. VERAMYST [Concomitant]
  12. PREDNISONE [Concomitant]
  13. METFORMIN [Concomitant]
  14. HYCOMINE [Concomitant]
  15. ACTONEL [Concomitant]
  16. FLUCONAZOLE [Concomitant]
  17. PROVIGIL [Concomitant]
  18. LEVOTHYROXINE [Concomitant]
  19. ESTER C [Concomitant]
  20. CITRUCEL [Concomitant]
  21. BIOTIN [Concomitant]
  22. UNSPECIFIED MEDICATION [Concomitant]
  23. FLAX SEED OIL [Concomitant]
  24. RED YEAST RICE [Concomitant]
  25. COQ10 [Concomitant]
  26. CRANBERRY EXTRACT [Concomitant]

REACTIONS (1)
  - DYSKINESIA [None]
